FAERS Safety Report 6236755-3 (Version None)
Quarter: 2009Q2

REPORT INFORMATION
  Report Type: 
  Country: None (occurrence: None)
  Receive Date: 20090619
  Receipt Date: 20090610
  Transmission Date: 20091009
  Serious: Yes (Hospitalization)
  Sender: FDA-Public Use
  Company Number: PHHO2009US07116

PATIENT

DRUGS (1)
  1. RAD 666 RAD+TAB+PTR [Suspect]

REACTIONS (1)
  - HYPERTENSIVE CRISIS [None]
